FAERS Safety Report 16358379 (Version 1)
Quarter: 2019Q2

REPORT INFORMATION
  Report Type: Spontaneous
  Country: CN (occurrence: CN)
  Receive Date: 20190527
  Receipt Date: 20190527
  Transmission Date: 20190711
  Serious: Yes (Hospitalization)
  Sender: FDA-Public Use
  Company Number: CN-009507513-1905CHN008680

PATIENT
  Age: 57 Year
  Sex: Female

DRUGS (2)
  1. HYZAAR [Suspect]
     Active Substance: HYDROCHLOROTHIAZIDE\LOSARTAN POTASSIUM
     Indication: AORTIC DISSECTION
     Dosage: 1 TABLET, QD
     Route: 048
     Dates: start: 20190428, end: 20190510
  2. MUCOSTA [Concomitant]
     Active Substance: REBAMIPIDE
     Indication: AORTIC DISSECTION
     Dosage: 100 MILLIGRAM, TID
     Route: 048
     Dates: start: 20190505, end: 20190506

REACTIONS (2)
  - White blood cell disorder [Recovered/Resolved]
  - White blood cell count decreased [Recovered/Resolved]

NARRATIVE: CASE EVENT DATE: 20190506
